FAERS Safety Report 18586679 (Version 1)
Quarter: 2020Q4

REPORT INFORMATION
  Report Type: Report from Study
  Country: BR (occurrence: BR)
  Receive Date: 20201207
  Receipt Date: 20201207
  Transmission Date: 20210114
  Serious: Yes (Hospitalization)
  Sender: FDA-Public Use
  Company Number: BR-JNJFOC-20201153804

PATIENT
  Sex: Male

DRUGS (10)
  1. DOMPERIDONE [Concomitant]
     Active Substance: DOMPERIDONE
  2. QUETIAPINE. [Concomitant]
     Active Substance: QUETIAPINE
  3. SIMETHICONE (DIMETHICONE) [Concomitant]
     Active Substance: DIMETHICONE
  4. AKINETON [Concomitant]
     Active Substance: BIPERIDEN HYDROCHLORIDE
  5. TRILEPTAL [Concomitant]
     Active Substance: OXCARBAZEPINE
  6. MIGLUSTAT. [Suspect]
     Active Substance: MIGLUSTAT
     Indication: NIEMANN-PICK DISEASE
     Route: 048
     Dates: start: 20091201
  7. KEPPRA [Concomitant]
     Active Substance: LEVETIRACETAM
  8. BROMOPRIDE [Concomitant]
     Active Substance: BROMOPRIDE
  9. FRISIUM [Concomitant]
     Active Substance: CLOBAZAM
  10. BUSCOPAN [Concomitant]
     Active Substance: BUTYLSCOPOLAMINE BROMIDE

REACTIONS (2)
  - Urinary tract infection [Recovered/Resolved]
  - Abdominal distension [Recovered/Resolved]
